FAERS Safety Report 25325336 (Version 4)
Quarter: 2025Q3

REPORT INFORMATION
  Report Type: Report from Study
  Country: CO (occurrence: CO)
  Receive Date: 20250516
  Receipt Date: 20250919
  Transmission Date: 20251021
  Serious: Yes (Hospitalization, Other)
  Sender: EXELIXIS
  Company Number: CO-IPSEN Group, Research and Development-2025-03720

PATIENT
  Age: 43 Year
  Sex: Female
  Weight: 93 kg

DRUGS (10)
  1. CABOMETYX [Suspect]
     Active Substance: CABOZANTINIB S-MALATE
     Indication: Renal cell carcinoma
     Route: 048
     Dates: start: 20250207, end: 20250314
  2. CABOMETYX [Suspect]
     Active Substance: CABOZANTINIB S-MALATE
     Dosage: 1 TABLET EVERY MONDAY
     Route: 048
     Dates: start: 20250324, end: 20250501
  3. CABOMETYX [Suspect]
     Active Substance: CABOZANTINIB S-MALATE
     Route: 048
     Dates: start: 20250502, end: 20250509
  4. CABOMETYX [Suspect]
     Active Substance: CABOZANTINIB S-MALATE
     Route: 048
     Dates: start: 20250207
  5. EVEROLIMUS [Concomitant]
     Active Substance: EVEROLIMUS
     Indication: Renal cancer
     Dates: start: 2024
  6. MYCOPHENOLATE MOFETIL [Concomitant]
     Active Substance: MYCOPHENOLATE MOFETIL
     Indication: Renal transplant
     Dates: start: 2015
  7. MORPHINE [Concomitant]
     Active Substance: MORPHINE
     Indication: Pain
     Dates: start: 2025
  8. Hydrocodone bitartrate + acetaminophen [Concomitant]
     Indication: Pain
     Dates: start: 2025
  9. ONDANSETRON [Concomitant]
     Active Substance: ONDANSETRON
     Indication: Vomiting
     Dates: start: 2025
  10. ONDANSETRON [Concomitant]
     Active Substance: ONDANSETRON
     Indication: Nausea

REACTIONS (65)
  - Delirium [Not Recovered/Not Resolved]
  - Cardiac failure [Not Recovered/Not Resolved]
  - Syncope [Not Recovered/Not Resolved]
  - Oral pain [Not Recovered/Not Resolved]
  - Mouth haemorrhage [Not Recovered/Not Resolved]
  - Malignant neoplasm progression [Not Recovered/Not Resolved]
  - Somnolence [Not Recovered/Not Resolved]
  - General physical health deterioration [Not Recovered/Not Resolved]
  - Pain of skin [Not Recovered/Not Resolved]
  - Musculoskeletal pain [Not Recovered/Not Resolved]
  - Bedridden [Not Recovered/Not Resolved]
  - Gait disturbance [Not Recovered/Not Resolved]
  - Alopecia [Not Recovered/Not Resolved]
  - Gingival pain [Not Recovered/Not Resolved]
  - Pain in jaw [Not Recovered/Not Resolved]
  - Facial pain [Not Recovered/Not Resolved]
  - Sensitive skin [Not Recovered/Not Resolved]
  - Breath odour [Not Recovered/Not Resolved]
  - Parosmia [Not Recovered/Not Resolved]
  - Toxicity to various agents [Not Recovered/Not Resolved]
  - Coagulopathy [Not Recovered/Not Resolved]
  - Hair colour changes [Not Recovered/Not Resolved]
  - General physical health deterioration [Not Recovered/Not Resolved]
  - Migraine [Not Recovered/Not Resolved]
  - Abdominal rebound tenderness [Not Recovered/Not Resolved]
  - Hypoaesthesia [Not Recovered/Not Resolved]
  - Paraesthesia [Not Recovered/Not Resolved]
  - Migraine [Not Recovered/Not Resolved]
  - Breast pain [Not Recovered/Not Resolved]
  - Anxiety [Not Recovered/Not Resolved]
  - Chest pain [Not Recovered/Not Resolved]
  - Toothache [Not Recovered/Not Resolved]
  - Abdominal distension [Not Recovered/Not Resolved]
  - Flatulence [Not Recovered/Not Resolved]
  - Food intolerance [Not Recovered/Not Resolved]
  - Dissociation [Not Recovered/Not Resolved]
  - Anxiety [Not Recovered/Not Resolved]
  - Speech disorder [Not Recovered/Not Resolved]
  - Slow speech [Not Recovered/Not Resolved]
  - Diarrhoea [Not Recovered/Not Resolved]
  - Fatigue [Not Recovered/Not Resolved]
  - Pain in extremity [Not Recovered/Not Resolved]
  - Asthenia [Not Recovered/Not Resolved]
  - Fatigue [Not Recovered/Not Resolved]
  - Fatigue [Not Recovered/Not Resolved]
  - Arthralgia [Not Recovered/Not Resolved]
  - Pain [Not Recovered/Not Resolved]
  - Nausea [Not Recovered/Not Resolved]
  - Dysgeusia [Not Recovered/Not Resolved]
  - Pain in extremity [Not Recovered/Not Resolved]
  - Diarrhoea [Not Recovered/Not Resolved]
  - Abdominal pain upper [Not Recovered/Not Resolved]
  - Abdominal pain [Not Recovered/Not Resolved]
  - Gingival bleeding [Not Recovered/Not Resolved]
  - Headache [Not Recovered/Not Resolved]
  - Pain [Not Recovered/Not Resolved]
  - Weight decreased [Not Recovered/Not Resolved]
  - Bone pain [Not Recovered/Not Resolved]
  - Back pain [Not Recovered/Not Resolved]
  - Vomiting [Not Recovered/Not Resolved]
  - Dyspnoea [Not Recovered/Not Resolved]
  - Malaise [Not Recovered/Not Resolved]
  - Pulmonary pain [Not Recovered/Not Resolved]
  - Off label use [Unknown]
  - Off label use [Unknown]

NARRATIVE: CASE EVENT DATE: 20250201
